FAERS Safety Report 22368958 (Version 1)
Quarter: 2023Q2

REPORT INFORMATION
  Report Type: Spontaneous
  Country: KR (occurrence: KR)
  Receive Date: 20230525
  Receipt Date: 20230525
  Transmission Date: 20230721
  Serious: Yes (Hospitalization)
  Sender: FDA-Public Use
  Company Number: KR-WOODWARD-2023-KR-000039

PATIENT
  Age: 62 Year
  Sex: Male
  Weight: 62 kg

DRUGS (6)
  1. RABEPRAZOLE SODIUM [Suspect]
     Active Substance: RABEPRAZOLE SODIUM
     Indication: Product used for unknown indication
     Dosage: (5 MG,1 D)
     Route: 048
     Dates: start: 20220207, end: 2022
  2. BORYUNGBIO ASTRIX [Concomitant]
     Dosage: (100 MG,1 D)
     Route: 048
     Dates: start: 20211005
  3. VASTINAN MR [Concomitant]
     Dosage: (35 MG,1 D)
     Route: 048
     Dates: start: 20211005
  4. DIABEX [Concomitant]
     Active Substance: METFORMIN HYDROCHLORIDE
     Dosage: (500 MG,1 D)
     Route: 048
     Dates: start: 20211005
  5. BRILINTA [Concomitant]
     Active Substance: TICAGRELOR
     Dosage: (90 MG,1 D)
     Route: 048
     Dates: start: 20211005
  6. DAPAGLIFLOZIN [Concomitant]
     Active Substance: DAPAGLIFLOZIN
     Dosage: (10 MG,1 D)
     Route: 048
     Dates: start: 20211005

REACTIONS (1)
  - Empyema [Recovered/Resolved]

NARRATIVE: CASE EVENT DATE: 20220704
